FAERS Safety Report 6944697-0 (Version None)
Quarter: 2010Q3

REPORT INFORMATION
  Report Type: 
  Country: None (occurrence: None)
  Receive Date: 20100823
  Receipt Date: 20100807
  Transmission Date: 20110219
  Serious: Yes (Other)
  Sender: FDA-Public Use
  Company Number: 1000015737

PATIENT
  Age: 38 Year
  Sex: Female
  Weight: 50 kg

DRUGS (4)
  1. ESCITALOPRAM OXALATE [Suspect]
     Dosage: SINGLE DOSAGE (ONCE), ORAL; ORAL
     Route: 048
     Dates: start: 20100807, end: 20100807
  2. STANGYL (60 MILLILITRE(S), DROPS (FOR ORAL USE)) [Suspect]
     Dosage: 2400 MG (2400 MG, ONCE), ORAL
     Route: 048
     Dates: start: 20100807, end: 20100807
  3. OPIPRAMOL [Suspect]
     Dosage: SINGLE DOSAGE (ONCE), ORAL
     Route: 048
     Dates: start: 20100807, end: 20100807
  4. ALCOHOL [Suspect]
     Dosage: SINGLE AMOUNT (ONCE), ORAL
     Route: 048
     Dates: start: 20100807, end: 20100807

REACTIONS (5)
  - ALCOHOL USE [None]
  - MULTIPLE DRUG OVERDOSE INTENTIONAL [None]
  - SOMNOLENCE [None]
  - SUICIDE ATTEMPT [None]
  - UNEVALUABLE EVENT [None]
